FAERS Safety Report 8035891-9 (Version None)
Quarter: 2012Q1

REPORT INFORMATION
  Report Type: 
  Country: None (occurrence: None)
  Receive Date: 20120111
  Receipt Date: 20120111
  Transmission Date: 20120608
  Serious: Yes (Hospitalization)
  Sender: FDA-Public Use
  Company Number: None

PATIENT
  Age: 73 Year
  Sex: Female
  Weight: 59.874 kg

DRUGS (1)
  1. MS CONTIN [Suspect]
     Indication: PAIN
     Dosage: 75 MG
     Route: 048
     Dates: start: 20110613, end: 20110708

REACTIONS (3)
  - FALL [None]
  - WRIST FRACTURE [None]
  - PRODUCT SUBSTITUTION ISSUE [None]
